FAERS Safety Report 4448908-5 (Version None)
Quarter: 2004Q3

REPORT INFORMATION
  Report Type: 
  Country: None (occurrence: None)
  Receive Date: 20040909
  Receipt Date: 20040827
  Transmission Date: 20050211
  Serious: No
  Sender: FDA-Public Use
  Company Number: 04H-163-0271869-00

PATIENT
  Sex: Female
  Weight: 68.0396 kg

DRUGS (5)
  1. KETOROLAC TROMETHAMINE [Suspect]
     Indication: BACK PAIN
     Dosage: SINGLE DOSE
     Dates: start: 20040801, end: 20040801
  2. LEVOTHYROXINE SODIUM [Concomitant]
  3. CETIRIZINE HCL [Concomitant]
  4. FLUTICASONE PROPIONATE [Concomitant]
  5. NUVARING [Concomitant]

REACTIONS (3)
  - ANXIETY [None]
  - APHASIA [None]
  - COLD SWEAT [None]
